FAERS Safety Report 8379399-X (Version None)
Quarter: 2012Q2

REPORT INFORMATION
  Report Type: 
  Country: None (occurrence: None)
  Receive Date: 20120523
  Receipt Date: 20120517
  Transmission Date: 20120825
  Serious: Yes (Hospitalization)
  Sender: FDA-Public Use
  Company Number: US-B.I. PHARMACEUTICALS,INC./RIDGEFIELD-2011-BP-11724BP

PATIENT
  Age: 90 Year
  Sex: Male

DRUGS (6)
  1. FLAXSEED OIL [Concomitant]
  2. PRADAXA [Suspect]
     Indication: DRUG THERAPY CHANGED
     Dosage: 300 MG
     Route: 048
     Dates: start: 20110420, end: 20110423
  3. ASPIRIN [Concomitant]
  4. CARVEDILOL [Concomitant]
     Indication: HYPERTENSION
     Dosage: 50 MG
  5. DIOVAN [Concomitant]
     Indication: HYPERTENSION
  6. FUROSEMIDE [Concomitant]

REACTIONS (4)
  - DRUG HYPERSENSITIVITY [None]
  - HAEMORRHAGE [None]
  - MOUTH HAEMORRHAGE [None]
  - HAEMOPTYSIS [None]
